FAERS Safety Report 20620924 (Version 4)
Quarter: 2022Q2

REPORT INFORMATION
  Report Type: Report from Study
  Country: IN (occurrence: IN)
  Receive Date: 20220322
  Receipt Date: 20220621
  Transmission Date: 20220721
  Serious: Yes (Hospitalization)
  Sender: FDA-Public Use
  Company Number: IN-002147023-NVSC2022IN060389

PATIENT
  Age: 51 Year
  Sex: Female

DRUGS (10)
  1. ERENUMAB [Suspect]
     Active Substance: ERENUMAB
     Indication: Migraine prophylaxis
     Dosage: 70 MILLIGRAM, QMO (1ST DOSE)
     Route: 048
     Dates: start: 20210826
  2. ERENUMAB [Suspect]
     Active Substance: ERENUMAB
     Dosage: UNK (2ND DOSE)
     Route: 065
     Dates: start: 20210924
  3. ERENUMAB [Suspect]
     Active Substance: ERENUMAB
     Dosage: UNK (3RD DOSE)
     Route: 065
     Dates: start: 20211022
  4. ERENUMAB [Suspect]
     Active Substance: ERENUMAB
     Dosage: UNK (4TH DOSE)
     Route: 065
     Dates: start: 20211119
  5. ERENUMAB [Suspect]
     Active Substance: ERENUMAB
     Dosage: UNK (5TH DOSE)
     Route: 065
     Dates: start: 20211219
  6. ERENUMAB [Suspect]
     Active Substance: ERENUMAB
     Dosage: UNK (6TH DOSE)
     Route: 065
     Dates: start: 20220119
  7. ERENUMAB [Suspect]
     Active Substance: ERENUMAB
     Dosage: UNK (7TH DOSE)
     Route: 065
     Dates: start: 20220218
  8. ERENUMAB [Suspect]
     Active Substance: ERENUMAB
     Dosage: UNK (8TH DOSE)
     Route: 065
     Dates: start: 20220313
  9. ERENUMAB [Suspect]
     Active Substance: ERENUMAB
     Dosage: UNK (9TH DOSE)
     Route: 058
     Dates: start: 20220410
  10. ERENUMAB [Suspect]
     Active Substance: ERENUMAB
     Dosage: UNK (10TH DOSE)
     Route: 058
     Dates: start: 20220516

REACTIONS (4)
  - Headache [Unknown]
  - Vomiting [Unknown]
  - Dehydration [Unknown]
  - Inappropriate schedule of product administration [Unknown]

NARRATIVE: CASE EVENT DATE: 20211022
